FAERS Safety Report 6424491-X (Version None)
Quarter: 2009Q4

REPORT INFORMATION
  Report Type: 
  Country: None (occurrence: None)
  Receive Date: 20091103
  Receipt Date: 20091027
  Transmission Date: 20100525
  Serious: Yes (Hospitalization)
  Sender: FDA-Public Use
  Company Number: BR-ASTRAZENECA-2009SE23250

PATIENT
  Age: 60 Year
  Sex: Female
  Weight: 56 kg

DRUGS (4)
  1. CRESTOR [Suspect]
     Indication: HYPERCHOLESTEROLAEMIA
     Route: 048
     Dates: start: 20091020
  2. OMEPRAZOLE [Suspect]
     Route: 048
     Dates: start: 20081101
  3. ALENDRONATE SODIUM [Concomitant]
  4. BONIVA [Concomitant]

REACTIONS (4)
  - DIVERTICULITIS [None]
  - DYSPEPSIA [None]
  - HYPERCHOLESTEROLAEMIA [None]
  - OSTEOPOROSIS [None]
